FAERS Safety Report 9719152 (Version 2)
Quarter: 2014Q1

REPORT INFORMATION
  Report Type: Report from Study
  Country: CL (occurrence: CL)
  Receive Date: 20131127
  Receipt Date: 20140106
  Transmission Date: 20141002
  Serious: Yes (Hospitalization)
  Sender: FDA-Public Use
  Company Number: PHHY2013CL136490

PATIENT
  Age: 74 Year
  Sex: Male

DRUGS (3)
  1. EXFORGE [Suspect]
     Indication: HYPERTENSION
     Dosage: 1 DF, UNK (VALS 80 MG AND AMLO 5 MG)
     Route: 048
  2. EXFORGE [Suspect]
     Dosage: 1 DF, (VALS 160 MG AND AMLO 10 MG)
     Route: 048
  3. ASPIRIN [Concomitant]
     Indication: HYPERTENSION
     Dosage: UNK UKN, UNK

REACTIONS (3)
  - Cholelithiasis [Recovered/Resolved]
  - Umbilical hernia [Recovering/Resolving]
  - Benign prostatic hyperplasia [Recovered/Resolved]
